FAERS Safety Report 21335671 (Version 1)
Quarter: 2022Q3

REPORT INFORMATION
  Report Type: Spontaneous
  Country: US (occurrence: None)
  Receive Date: 20220915
  Receipt Date: 20220915
  Transmission Date: 20221026
  Serious: Yes (Death, Other)
  Sender: FDA-Public Use
  Company Number: US-ROCHE-3176204

PATIENT
  Sex: Male

DRUGS (1)
  1. OCREVUS [Suspect]
     Active Substance: OCRELIZUMAB
     Indication: Relapsing multiple sclerosis
     Route: 065
     Dates: start: 2019

REACTIONS (3)
  - Death [Fatal]
  - Lung carcinoma cell type unspecified stage IV [Unknown]
  - Sepsis [Unknown]

NARRATIVE: CASE EVENT DATE: 20220401
